FAERS Safety Report 5893296-0 (Version None)
Quarter: 2008Q3

REPORT INFORMATION
  Report Type: 
  Country: None (occurrence: None)
  Receive Date: 20080923
  Receipt Date: 20080919
  Transmission Date: 20090109
  Serious: Yes (Hospitalization)
  Sender: FDA-Public Use
  Company Number: A0748852A

PATIENT
  Age: 40 Year
  Sex: Male

DRUGS (5)
  1. SERETIDE [Suspect]
     Indication: ASTHMA
     Dosage: 2PUFF TWICE PER DAY
     Route: 055
     Dates: start: 20080820
  2. NASONEX [Concomitant]
     Dates: start: 20080528
  3. EUTHYROX [Concomitant]
     Dates: start: 20080528
  4. OLMESARTAN MEDOXOMIL [Concomitant]
     Dates: start: 20080528
  5. TESTOSTERONE [Concomitant]

REACTIONS (1)
  - CARDIAC DISORDER [None]
